FAERS Safety Report 18733435 (Version 2)
Quarter: 2021Q1

REPORT INFORMATION
  Report Type: Report from Study
  Country: JP (occurrence: JP)
  Receive Date: 20210112
  Receipt Date: 20210120
  Transmission Date: 20210419
  Serious: Yes (Hospitalization, Other)
  Sender: FDA-Public Use
  Company Number: JP-CELLTRION INC.-2021JP000164

PATIENT

DRUGS (5)
  1. CT?P13 [Suspect]
     Active Substance: INFLIXIMAB-DYYB
     Indication: COLITIS ULCERATIVE
     Dosage: 355 MILLIGRAM (WEIGHT: 70.8 KG)
     Route: 041
     Dates: start: 20181113, end: 20181113
  2. AZATHIOPRINE. [Concomitant]
     Active Substance: AZATHIOPRINE
     Dosage: 25 MILLIGRAM/DAY
     Route: 048
     Dates: start: 20170418
  3. CT?P13 [Suspect]
     Active Substance: INFLIXIMAB-DYYB
     Dosage: 345 MILLIGRAM (WEIGHT 68.7 KG)
     Route: 041
     Dates: start: 20191029, end: 20191029
  4. MESALAZINE [Concomitant]
     Active Substance: MESALAMINE
     Dosage: 1 GRAM/DAY
     Route: 054
  5. MESALAZINE [Concomitant]
     Active Substance: MESALAMINE
     Dosage: 3600 MILLIGRAM/DAY
     Route: 048

REACTIONS (7)
  - Nasopharyngitis [Not Recovered/Not Resolved]
  - Pneumonia [Recovered/Resolved]
  - Pneumonia bacterial [Recovered/Resolved]
  - Constipation [Not Recovered/Not Resolved]
  - Off label use [Unknown]
  - Overdose [Unknown]
  - Product use issue [Unknown]

NARRATIVE: CASE EVENT DATE: 20190501
